FAERS Safety Report 6045793-5 (Version None)
Quarter: 2009Q1

REPORT INFORMATION
  Report Type: 
  Country: None (occurrence: None)
  Receive Date: 20090121
  Receipt Date: 20090113
  Transmission Date: 20090719
  Serious: Yes (Hospitalization, Other)
  Sender: FDA-Public Use
  Company Number: US-ABBOTT-09P-163-0497153-00

PATIENT
  Sex: Female
  Weight: 95.34 kg

DRUGS (1)
  1. HUMIRA [Suspect]
     Indication: PSORIASIS
     Dates: start: 20081001, end: 20081227

REACTIONS (6)
  - INJECTION SITE REACTION [None]
  - OCULAR HYPERAEMIA [None]
  - PHARYNGEAL MASS [None]
  - PHARYNGITIS [None]
  - PSORIASIS [None]
  - PYREXIA [None]
